FAERS Safety Report 23302102 (Version 4)
Quarter: 2024Q3

REPORT INFORMATION
  Report Type: Report from Study
  Country: US (occurrence: US)
  Receive Date: 20231215
  Receipt Date: 20240724
  Transmission Date: 20241016
  Serious: Yes (Hospitalization)
  Sender: ABBVIE
  Company Number: US-ABBVIE-5346913

PATIENT
  Sex: Female

DRUGS (1)
  1. SKYRIZI [Suspect]
     Active Substance: RISANKIZUMAB-RZAA
     Indication: Psoriasis
     Route: 058
     Dates: start: 20220627

REACTIONS (14)
  - Fall [Recovered/Resolved]
  - Fall [Recovered/Resolved]
  - Headache [Not Recovered/Not Resolved]
  - Fall [Unknown]
  - Skull fracture [Recovering/Resolving]
  - General physical health deterioration [Unknown]
  - Fall [Recovered/Resolved]
  - Fall [Unknown]
  - Injury [Unknown]
  - Sinus disorder [Unknown]
  - Neck pain [Unknown]
  - Knee arthroplasty [Unknown]
  - Disease risk factor [Unknown]
  - Glycosylated haemoglobin increased [Unknown]

NARRATIVE: CASE EVENT DATE: 20230101
